FAERS Safety Report 12643953 (Version 1)
Quarter: 2016Q3

REPORT INFORMATION
  Report Type: Spontaneous
  Country: US (occurrence: US)
  Receive Date: 20160811
  Receipt Date: 20160811
  Transmission Date: 20161109
  Serious: No
  Sender: FDA-Public Use
  Company Number: US-BAYER-2016-152198

PATIENT
  Age: 59 Year
  Sex: Female
  Weight: 73.16 kg

DRUGS (6)
  1. MIRALAX [Suspect]
     Active Substance: POLYETHYLENE GLYCOL 3350
     Indication: COLONOSCOPY
     Dosage: UNK
     Route: 048
     Dates: start: 20160804, end: 20160804
  2. LEVOTHYROXINE. [Concomitant]
     Active Substance: LEVOTHYROXINE
  3. METFORMIN [Concomitant]
     Active Substance: METFORMIN HYDROCHLORIDE
  4. GABAPENTIN. [Concomitant]
     Active Substance: GABAPENTIN
  5. LISINOPRIL. [Concomitant]
     Active Substance: LISINOPRIL
  6. VENLAFAXINE HYDROCHLORIDE. [Concomitant]
     Active Substance: VENLAFAXINE HYDROCHLORIDE

REACTIONS (1)
  - Circumstance or information capable of leading to medication error [None]

NARRATIVE: CASE EVENT DATE: 20160804
